FAERS Safety Report 5173235-0 (Version None)
Quarter: 2006Q4

REPORT INFORMATION
  Report Type: 
  Country: None (occurrence: None)
  Receive Date: 20061214
  Receipt Date: 20061205
  Transmission Date: 20070319
  Serious: Yes (Hospitalization)
  Sender: FDA-Public Use
  Company Number: US-AVENTIS-200619814US

PATIENT
  Sex: Female

DRUGS (15)
  1. LASIX [Suspect]
     Dosage: DOSE: UNK
  2. CODE UNBROKEN [Suspect]
     Indication: CARDIAC FAILURE
     Dates: start: 20041119, end: 20060815
  3. ACE INHIBITOR NOS [Suspect]
     Dosage: DOSE: UNK
     Dates: end: 20060815
  4. MAVIK [Concomitant]
     Dosage: DOSE: UNK
     Dates: start: 20000101, end: 20060815
  5. INSULIN [Concomitant]
     Dosage: DOSE: UNK
  6. HUMALOG [Concomitant]
     Dosage: DOSE: UNK
  7. LANTUS [Concomitant]
     Dosage: DOSE: UNK
  8. CELEBREX [Concomitant]
     Dosage: DOSE: UNK
  9. AMITRIPTYLINE HCL [Concomitant]
     Dosage: DOSE: UNK
  10. GLIPIZIDE [Concomitant]
     Dosage: DOSE: UNK
  11. LANOXIN [Concomitant]
     Dosage: DOSE: UNK
  12. LEVOXYL [Concomitant]
     Dosage: DOSE: UNK
  13. TOPROL-XL [Concomitant]
  14. MECLIZINE [Concomitant]
     Dosage: DOSE: UNK
  15. ZAROXOLYN [Concomitant]
     Dosage: DOSE: UNK

REACTIONS (7)
  - BLOOD CREATININE INCREASED [None]
  - BLOOD PRESSURE DIASTOLIC DECREASED [None]
  - DEHYDRATION [None]
  - HEART RATE DECREASED [None]
  - HYPERKALAEMIA [None]
  - PRESYNCOPE [None]
  - RENAL FAILURE [None]
